FAERS Safety Report 16442247 (Version 1)
Quarter: 2019Q2

REPORT INFORMATION
  Report Type: Report from Study
  Country: None (occurrence: US)
  Receive Date: 20190617
  Receipt Date: 20190617
  Transmission Date: 20190711
  Serious: No
  Sender: FDA-Public Use
  Company Number: US-US WORLDMEDS, LLC-USW201902-000401

PATIENT
  Sex: Male
  Weight: 76.65 kg

DRUGS (5)
  1. RYTARY [Suspect]
     Active Substance: CARBIDOPA\LEVODOPA
  2. APOKYN [Suspect]
     Active Substance: APOMORPHINE HYDROCHLORIDE
     Indication: PARKINSON^S DISEASE
     Route: 058
  3. LYRICA [Concomitant]
     Active Substance: PREGABALIN
  4. KEPPRA [Concomitant]
     Active Substance: LEVETIRACETAM
  5. AMANTADINE. [Concomitant]
     Active Substance: AMANTADINE HYDROCHLORIDE

REACTIONS (2)
  - Gambling [Not Recovered/Not Resolved]
  - Dyskinesia [Not Recovered/Not Resolved]
